FAERS Safety Report 8997924 (Version 1)
Quarter: 2013Q1

REPORT INFORMATION
  Report Type: Spontaneous
  Country: US (occurrence: US)
  Receive Date: 20130104
  Receipt Date: 20130104
  Transmission Date: 20140127
  Serious: Yes (Other)
  Sender: FDA-Public Use
  Company Number: US-TEVA-378429USA

PATIENT
  Age: 55 None
  Sex: Male

DRUGS (1)
  1. PROAIR HFA [Suspect]
     Indication: ASTHMA
     Route: 055

REACTIONS (3)
  - Pneumonia [Recovered/Resolved]
  - Nasopharyngitis [Unknown]
  - Inappropriate schedule of drug administration [Unknown]
